FAERS Safety Report 4405577-8 (Version None)
Quarter: 2004Q3

REPORT INFORMATION
  Report Type: 
  Country: None (occurrence: None)
  Receive Date: 20040723
  Receipt Date: 20031006
  Transmission Date: 20050211
  Serious: No
  Sender: FDA-Public Use
  Company Number: US-GLAXOSMITHKLINE-A0428969A

PATIENT
  Age: 47 Year
  Sex: Male

DRUGS (8)
  1. AVANDIA [Suspect]
     Dosage: 8MG PER DAY
     Route: 048
     Dates: end: 20030930
  2. METFORMIN HCL [Concomitant]
  3. INSULIN [Concomitant]
  4. GLIPIZIDE [Concomitant]
  5. LASIX [Concomitant]
  6. MAXZIDE [Concomitant]
  7. AMIODARONE HCL [Concomitant]
  8. LIPITOR [Concomitant]

REACTIONS (2)
  - HYPERGLYCAEMIA [None]
  - WEIGHT INCREASED [None]
